FAERS Safety Report 8277482-0 (Version None)
Quarter: 2012Q2

REPORT INFORMATION
  Report Type: 
  Country: None (occurrence: None)
  Receive Date: 20120412
  Receipt Date: 20120406
  Transmission Date: 20120825
  Serious: Yes (Hospitalization)
  Sender: FDA-Public Use
  Company Number: PHHY2012HU030599

PATIENT
  Sex: Male

DRUGS (2)
  1. CETIRIZINE [Suspect]
     Indication: RASH
     Dosage: 2.5 MG, ONCE/SINGLE
     Route: 048
     Dates: start: 20120304, end: 20120304
  2. CETIRIZINE [Suspect]
     Indication: CROUP INFECTIOUS
     Dosage: 2.5 MG, ONCE/SINGLE
     Route: 048

REACTIONS (7)
  - TACHYPNOEA [None]
  - SPEECH DISORDER [None]
  - DYSSTASIA [None]
  - TREMOR [None]
  - SOMNOLENCE [None]
  - TACHYCARDIA [None]
  - CROUP INFECTIOUS [None]
